FAERS Safety Report 9293113 (Version 2)
Quarter: 2013Q2

REPORT INFORMATION
  Report Type: Spontaneous
  Country: US (occurrence: None)
  Receive Date: 20130514
  Receipt Date: 20130530
  Transmission Date: 20140414
  Serious: Yes (Other)
  Sender: FDA-Public Use
  Company Number: 2013P1005444

PATIENT
  Age: 21 Year
  Sex: Female

DRUGS (3)
  1. MYORISAN [Suspect]
     Indication: ACNE
  2. MYORISAN [Suspect]
     Indication: FOLLICULITIS
  3. UNSPECIFIED BIRTH CONTROL PILL [Concomitant]

REACTIONS (2)
  - Mood swings [None]
  - Bipolar disorder [None]
